FAERS Safety Report 5143924-2 (Version None)
Quarter: 2006Q4

REPORT INFORMATION
  Report Type: 
  Country: None (occurrence: None)
  Receive Date: 20061030
  Receipt Date: 20061013
  Transmission Date: 20070319
  Serious: Yes (Other)
  Sender: FDA-Public Use
  Company Number: DSA_28846_2006

PATIENT
  Sex: Female

DRUGS (3)
  1. CARDIZEM [Suspect]
     Dosage: 180 MG Q DAY
  2. LABETALOL HCL [Concomitant]
  3. DYAZIDE [Concomitant]

REACTIONS (2)
  - CEREBROVASCULAR ACCIDENT [None]
  - MYOCARDIAL INFARCTION [None]
